FAERS Safety Report 8095230-4 (Version None)
Quarter: 2012Q1

REPORT INFORMATION
  Report Type: 
  Country: None (occurrence: None)
  Receive Date: 20120129
  Receipt Date: 20111230
  Transmission Date: 20120608
  Serious: No
  Sender: FDA-Public Use
  Company Number: US-ABBOTT-11P-163-0887825-00

PATIENT
  Sex: Female
  Weight: 105.78 kg

DRUGS (1)
  1. HUMIRA [Suspect]
     Indication: PSORIASIS
     Dates: start: 20110701

REACTIONS (9)
  - SINUSITIS [None]
  - HEADACHE [None]
  - PARAESTHESIA [None]
  - REBOUND PSORIASIS [None]
  - VISION BLURRED [None]
  - HYPOAESTHESIA [None]
  - ACNE [None]
  - FUNGAL INFECTION [None]
  - OROPHARYNGEAL PAIN [None]
